FAERS Safety Report 20128273 (Version 1)
Quarter: 2021Q4

REPORT INFORMATION
  Report Type: Spontaneous
  Country: US (occurrence: US)
  Receive Date: 20211129
  Receipt Date: 20211129
  Transmission Date: 20220303
  Serious: No
  Sender: FDA-Public Use
  Company Number: US-drreddys-SPO/USA/21/0144203

PATIENT
  Sex: Male

DRUGS (1)
  1. FAMOTIDINE [Suspect]
     Active Substance: FAMOTIDINE
     Indication: Dyspepsia
     Dosage: 4 DAYS A WEEK
     Dates: start: 202110, end: 20211123

REACTIONS (4)
  - Burning sensation [Unknown]
  - Rash [Unknown]
  - Adverse drug reaction [Unknown]
  - Treatment noncompliance [Unknown]
